FAERS Safety Report 16241221 (Version 1)
Quarter: 2019Q2

REPORT INFORMATION
  Report Type: Report from Study
  Country: None (occurrence: US)
  Receive Date: 20190425
  Receipt Date: 20190425
  Transmission Date: 20190711
  Serious: Yes (Hospitalization, Other)
  Sender: FDA-Public Use
  Company Number: US-ABBVIE-19S-163-2755020-00

PATIENT
  Age: 57 Year
  Sex: Female

DRUGS (1)
  1. GENGRAF [Suspect]
     Active Substance: CYCLOSPORINE
     Indication: PRODUCT USED FOR UNKNOWN INDICATION
     Route: 048

REACTIONS (12)
  - Hip arthroplasty [Unknown]
  - Lung transplant [Unknown]
  - Lung transplant [Unknown]
  - Lung transplant rejection [Unknown]
  - Cholelithiasis [Unknown]
  - Haemorrhoids [Unknown]
  - Joint dislocation [Unknown]
  - Arthralgia [Unknown]
  - Antibody test abnormal [Unknown]
  - Diverticulitis [Unknown]
  - Diverticulitis [Unknown]
  - Polypectomy [Unknown]

NARRATIVE: CASE EVENT DATE: 20090701
